FAERS Safety Report 8262985-5 (Version None)
Quarter: 2012Q2

REPORT INFORMATION
  Report Type: 
  Country: None (occurrence: None)
  Receive Date: 20120405
  Receipt Date: 20120328
  Transmission Date: 20120825
  Serious: Yes (Hospitalization)
  Sender: FDA-Public Use
  Company Number: US-MERCK-1112USA01228

PATIENT
  Age: 64 Year
  Sex: Female
  Weight: 81 kg

DRUGS (9)
  1. FOSAMAX [Suspect]
     Route: 048
     Dates: start: 20020901
  2. FOSAMAX [Suspect]
     Route: 048
     Dates: start: 20081201
  3. FOSAMAX [Suspect]
     Indication: OSTEOPOROSIS
     Route: 048
     Dates: start: 20050215, end: 20081101
  4. ALENDRONATE SODIUM [Suspect]
     Route: 048
     Dates: start: 20081225, end: 20091123
  5. FOSAMAX [Suspect]
     Route: 048
     Dates: start: 20020901
  6. FOSAMAX [Suspect]
     Route: 048
     Dates: start: 20081201
  7. MULTI-VITAMINS [Concomitant]
     Route: 065
  8. FOSAMAX [Suspect]
     Indication: OSTEOPENIA
     Route: 048
     Dates: start: 20050215, end: 20081101
  9. OS-CAL + D [Concomitant]
     Route: 048

REACTIONS (36)
  - SOMNOLENCE [None]
  - BRADYCARDIA [None]
  - BLOOD CHOLESTEROL INCREASED [None]
  - JOINT SWELLING [None]
  - KYPHOSCOLIOSIS [None]
  - DIVERTICULUM INTESTINAL [None]
  - FEMUR FRACTURE [None]
  - INTERVERTEBRAL DISC DEGENERATION [None]
  - INSOMNIA [None]
  - PAIN IN EXTREMITY [None]
  - DIVERTICULUM [None]
  - FALL [None]
  - GOITRE [None]
  - ALOPECIA [None]
  - GLUCOSE TOLERANCE IMPAIRED [None]
  - ANAEMIA [None]
  - HYPERTENSION [None]
  - HEADACHE [None]
  - THYROID DISORDER [None]
  - SPONDYLITIS [None]
  - SCIATICA [None]
  - DIARRHOEA [None]
  - ANTINUCLEAR ANTIBODY POSITIVE [None]
  - HYPERLIPIDAEMIA [None]
  - WEIGHT DECREASED [None]
  - VITAMIN D DEFICIENCY [None]
  - CHOLELITHIASIS [None]
  - FATIGUE [None]
  - MEMORY IMPAIRMENT [None]
  - BACK PAIN [None]
  - DYSLIPIDAEMIA [None]
  - ADVERSE DRUG REACTION [None]
  - ARTHRALGIA [None]
  - OSTEOARTHRITIS [None]
  - OBESITY [None]
  - MALAISE [None]
